FAERS Safety Report 18294845 (Version 2)
Quarter: 2021Q1

REPORT INFORMATION
  Report Type: Spontaneous
  Country: US (occurrence: US)
  Receive Date: 20200922
  Receipt Date: 20210317
  Transmission Date: 20210419
  Serious: No
  Sender: FDA-Public Use
  Company Number: US-GLOBAL BLOOD THERAPEUTICS INC-US-GBT-20-01673

PATIENT
  Sex: Male

DRUGS (1)
  1. OXBRYTA [Suspect]
     Active Substance: VOXELOTOR
     Indication: SICKLE CELL DISEASE
     Route: 048
     Dates: start: 20200319, end: 2020

REACTIONS (8)
  - Fatigue [Unknown]
  - Treatment noncompliance [Unknown]
  - Lethargy [Unknown]
  - Product dose omission issue [Unknown]
  - Depressed mood [Unknown]
  - Sickle cell anaemia with crisis [Recovered/Resolved]
  - Therapy interrupted [Unknown]
  - Sickle cell anaemia with crisis [Recovered/Resolved]

NARRATIVE: CASE EVENT DATE: 2020
